FAERS Safety Report 9177587 (Version 1)
Quarter: 2013Q1

REPORT INFORMATION
  Report Type: Spontaneous
  Country: US (occurrence: US)
  Receive Date: 20130321
  Receipt Date: 20130321
  Transmission Date: 20140127
  Serious: Yes (Other)
  Sender: FDA-Public Use
  Company Number: US-BAYER-2013-035134

PATIENT
  Age: 43 Year
  Sex: Female

DRUGS (2)
  1. MIRENA [Suspect]
     Indication: MENORRHAGIA
     Dosage: 20 MCG/24HR, CONT
     Route: 015
     Dates: start: 20120724, end: 20120728
  2. MIRENA [Suspect]
     Indication: CONTRACEPTION

REACTIONS (3)
  - Vaginal haemorrhage [None]
  - Abdominal pain lower [None]
  - Device expulsion [None]
